FAERS Safety Report 8813045 (Version 1)
Quarter: 2012Q4

REPORT INFORMATION
  Report Type: 
  Country: IT (occurrence: IT)
  Receive Date: 20120927
  Receipt Date: 20120927
  Transmission Date: 20130627
  Serious: Yes (Other)
  Sender: FDA-Public Use
  Company Number: IT-EISAI INC-E3810-05898-SPO-IT

PATIENT
  Age: 42 Year
  Sex: Male

DRUGS (2)
  1. PARIET [Suspect]
     Route: 048
     Dates: start: 20120917, end: 20120917
  2. PLASIL [Suspect]
     Indication: SELF INJURIOUS BEHAVIOUR
     Route: 048
     Dates: start: 20120917, end: 20120917

REACTIONS (2)
  - Self injurious behaviour [Unknown]
  - Intentional overdose [Unknown]
